FAERS Safety Report 25874182 (Version 1)
Quarter: 2025Q4

REPORT INFORMATION
  Report Type: Spontaneous
  Country: US (occurrence: None)
  Receive Date: 20251002
  Receipt Date: 20251002
  Transmission Date: 20260117
  Serious: Yes (Other)
  Sender: FDA-CTU
  Company Number: None

PATIENT
  Age: 45 Year
  Sex: Male

DRUGS (2)
  1. COSENTYX [Suspect]
     Active Substance: SECUKINUMAB
     Dosage: 160MG AT WEEK0, THEN 80MG EVERY 4 WEEKS THEREAFTER ?
  2. TALTZ [Suspect]
     Active Substance: IXEKIZUMAB

REACTIONS (6)
  - Off label use [None]
  - Rash erythematous [None]
  - Blister [None]
  - Injection site pruritus [None]
  - Feeling hot [None]
  - Throat tightness [None]
